FAERS Safety Report 8823029 (Version 2)
Quarter: 2013Q1

REPORT INFORMATION
  Report Type: Spontaneous
  Country: IT (occurrence: IT)
  Receive Date: 20121003
  Receipt Date: 20130128
  Transmission Date: 20140127
  Serious: Yes (Other)
  Sender: FDA-Public Use
  Company Number: IT-JNJFOC-20120911523

PATIENT
  Age: 50 Year
  Sex: Female

DRUGS (5)
  1. REMICADE [Suspect]
     Indication: SPONDYLOARTHROPATHY
     Route: 042
     Dates: start: 20120914, end: 20120914
  2. MEDROL [Concomitant]
     Route: 048
  3. METHOTREXATE [Concomitant]
     Route: 030
  4. FOLINA [Concomitant]
     Route: 048
  5. FOSAVANCE [Concomitant]
     Dosage: (ALENDRONATE SODIUM + CHOLECALCIDEROL )70MG + 5600 IU
     Route: 048

REACTIONS (2)
  - Hypertension [Recovered/Resolved]
  - Headache [Recovered/Resolved]
